FAERS Safety Report 13665889 (Version 1)
Quarter: 2017Q2

REPORT INFORMATION
  Report Type: Spontaneous
  Country: US (occurrence: US)
  Receive Date: 20170619
  Receipt Date: 20170619
  Transmission Date: 20170830
  Serious: No
  Sender: FDA-Public Use
  Company Number: US-BAYER-2017-108850

PATIENT
  Age: 11 Year
  Sex: Male

DRUGS (1)
  1. NEXAVAR [Suspect]
     Active Substance: SORAFENIB
     Indication: DESMOID TUMOUR
     Dosage: UNK
     Dates: start: 201612

REACTIONS (2)
  - Drug administered to patient of inappropriate age [None]
  - Hypersensitivity [None]

NARRATIVE: CASE EVENT DATE: 201612
